FAERS Safety Report 9766445 (Version 1)
Quarter: 2013Q4

REPORT INFORMATION
  Report Type: Spontaneous
  Country: US (occurrence: None)
  Receive Date: 20131216
  Receipt Date: 20131216
  Transmission Date: 20140711
  Serious: Yes (Other)
  Sender: FDA-Public Use
  Company Number: None

PATIENT
  Age: 6 Month
  Sex: Female
  Weight: 80.3 kg

DRUGS (1)
  1. LEVAQUIN [Suspect]
     Route: 042

REACTIONS (4)
  - Rash [None]
  - Rash [None]
  - Rash [None]
  - Hypersensitivity [None]
